FAERS Safety Report 8963068 (Version 1)
Quarter: 2012Q4

REPORT INFORMATION
  Report Type: Spontaneous
  Country: FR (occurrence: None)
  Receive Date: 20121205
  Receipt Date: 20121205
  Transmission Date: 20130627
  Serious: Yes (Other)
  Sender: FDA-Public Use
  Company Number: FR-2012-4003

PATIENT
  Age: 70 Year
  Sex: Male

DRUGS (2)
  1. NAVELBINE [Suspect]
     Indication: LUNG CANCER
     Dosage: 50 mg, per chemo, intravenous
     Route: 044
  2. CISPLATIN [Suspect]
     Indication: LUNG CANCER
     Dosage: 200 mg, per chemo regim , Unknown
     Route: 042

REACTIONS (2)
  - Renal pain [None]
  - Back pain [None]
